FAERS Safety Report 5802231-2 (Version None)
Quarter: 2008Q3

REPORT INFORMATION
  Report Type: 
  Country: None (occurrence: None)
  Receive Date: 20080707
  Receipt Date: 20080626
  Transmission Date: 20090109
  Serious: Yes (Other)
  Sender: FDA-Public Use
  Company Number: BR-JNJFOC-20080503270

PATIENT
  Age: 50 Year
  Sex: Female
  Weight: 90 kg

DRUGS (1)
  1. REMICADE [Suspect]
     Indication: PSORIASIS
     Dosage: 3 INFUSIONS ON UNKNOWN DATES
     Route: 042

REACTIONS (9)
  - ARTHRALGIA [None]
  - DYSPNOEA [None]
  - ERYTHEMA [None]
  - HYPERTENSION [None]
  - INFUSION RELATED REACTION [None]
  - MYOSITIS [None]
  - NAUSEA [None]
  - PAIN IN EXTREMITY [None]
  - VOMITING [None]
